FAERS Safety Report 11744499 (Version 2)
Quarter: 2016Q1

REPORT INFORMATION
  Report Type: Spontaneous
  Country: DE (occurrence: DE)
  Receive Date: 20151116
  Receipt Date: 20160308
  Transmission Date: 20160525
  Serious: Yes (Life-Threatening, Other)
  Sender: FDA-Public Use
  Company Number: DE-BAXTER-2015BAX060323

PATIENT
  Age: 74 Year
  Sex: Female

DRUGS (7)
  1. DANTROLEN [Suspect]
     Active Substance: DANTROLENE SODIUM
     Indication: HYPERTHERMIA MALIGNANT
     Dosage: 6 BOTTLES, INFUSION
     Route: 042
     Dates: start: 20151104
  2. PROPOFOL. [Suspect]
     Active Substance: PROPOFOL
     Indication: SEDATION
  3. SUPRANE [Suspect]
     Active Substance: DESFLURANE
     Indication: MAINTENANCE OF ANAESTHESIA
     Dosage: END TIDAL 3.0%
     Route: 055
     Dates: start: 20151104, end: 20151104
  4. PROPOFOL. [Suspect]
     Active Substance: PROPOFOL
     Indication: INDUCTION OF ANAESTHESIA
     Dosage: VIA PERFUSOR
     Route: 042
     Dates: start: 20151104, end: 20151105
  5. DANTROLEN [Suspect]
     Active Substance: DANTROLENE SODIUM
     Dosage: INFUSION, DOSE INCREASED
     Route: 042
     Dates: end: 20151104
  6. DIPIDOLOR [Suspect]
     Active Substance: PIRITRAMIDE
     Indication: PRODUCT USED FOR UNKNOWN INDICATION
     Route: 065
  7. SUFENTANIL [Suspect]
     Active Substance: SUFENTANIL
     Indication: INDUCTION AND MAINTENANCE OF ANAESTHESIA
     Route: 042
     Dates: start: 20151104, end: 20151104

REACTIONS (7)
  - Hyperthermia malignant [None]
  - Hyperhidrosis [Recovered/Resolved]
  - Tachycardia [Recovered/Resolved]
  - Carbon dioxide increased [Recovered/Resolved]
  - Pulmonary function test abnormal [Recovered/Resolved]
  - Tachypnoea [Recovered/Resolved]
  - Hypertension [Recovered/Resolved]

NARRATIVE: CASE EVENT DATE: 20151104
